FAERS Safety Report 10153532 (Version 1)
Quarter: 2014Q2

REPORT INFORMATION
  Report Type: Spontaneous
  Country: US (occurrence: US)
  Receive Date: 20140505
  Receipt Date: 20140505
  Transmission Date: 20141212
  Serious: Yes (Other)
  Sender: FDA-Public Use
  Company Number: PHHY2014US053868

PATIENT
  Age: 50 Year
  Sex: Female

DRUGS (4)
  1. ZOMETA [Suspect]
     Indication: PLASMA CELL MYELOMA
     Dosage: UNK
     Dates: start: 2000, end: 200910
  2. METOPROLOL [Concomitant]
  3. ALBUTEROL [Concomitant]
  4. DIVALPROEX SODIUM [Concomitant]

REACTIONS (5)
  - Osteonecrosis of jaw [Unknown]
  - Osteomyelitis [Unknown]
  - Face oedema [Unknown]
  - Dental fistula [Unknown]
  - Purulent discharge [Recovering/Resolving]
